FAERS Safety Report 5272722-4 (Version None)
Quarter: 2007Q1

REPORT INFORMATION
  Report Type: 
  Country: None (occurrence: None)
  Receive Date: 20070322
  Receipt Date: 20070307
  Transmission Date: 20070707
  Serious: Yes (Life-Threatening, Hospitalization, Other)
  Sender: FDA-Public Use
  Company Number: FR-MERCK-0702FRA00085

PATIENT
  Age: 10 Year
  Sex: Female
  Weight: 29 kg

DRUGS (6)
  1. PRIMAXIN [Suspect]
     Indication: PSEUDOMONAS INFECTION
     Route: 041
     Dates: start: 20070218, end: 20070228
  2. GLYBURIDE [Concomitant]
     Indication: HYPERGLYCAEMIA
     Route: 048
     Dates: start: 20070101, end: 20070228
  3. FUROSEMIDE [Suspect]
     Indication: OLIGURIA
     Route: 048
     Dates: start: 20070226, end: 20070228
  4. PRISTINAMYCIN [Concomitant]
     Route: 048
     Dates: start: 20070101, end: 20070228
  5. SERTRALINE HYDROCHLORIDE [Concomitant]
     Route: 048
  6. COLISTIN [Concomitant]
     Dates: start: 20070101, end: 20070228

REACTIONS (4)
  - CONDITION AGGRAVATED [None]
  - MALAISE [None]
  - METABOLIC ALKALOSIS [None]
  - VOMITING [None]
